FAERS Safety Report 6929242-8 (Version None)
Quarter: 2010Q3

REPORT INFORMATION
  Report Type: 
  Country: None (occurrence: None)
  Receive Date: 20100813
  Receipt Date: 20100730
  Transmission Date: 20110219
  Serious: Yes (Hospitalization, Other)
  Sender: FDA-Public Use
  Company Number: 7013034

PATIENT
  Age: 57 Year
  Sex: Female

DRUGS (1)
  1. REBIF [Suspect]
     Indication: PRODUCT USED FOR UNKNOWN INDICATION
     Dosage: 44 MCG, 3 IN 1 WK, SUBCUTANEOUS
     Route: 058
     Dates: start: 20090804, end: 20100701

REACTIONS (5)
  - CARDIAC PACEMAKER INSERTION [None]
  - CARDIAC PACEMAKER REPLACEMENT [None]
  - DEVICE MALFUNCTION [None]
  - INFECTION [None]
  - WHITE BLOOD CELL COUNT DECREASED [None]
